FAERS Safety Report 7477912-8 (Version None)
Quarter: 2011Q2

REPORT INFORMATION
  Report Type: 
  Country: None (occurrence: None)
  Receive Date: 20110513
  Receipt Date: 20090625
  Transmission Date: 20111010
  Serious: Yes (Other)
  Sender: FDA-Public Use
  Company Number: US-BAYER-200924126NA

PATIENT
  Age: 60 Year
  Sex: Male
  Weight: 94 kg

DRUGS (20)
  1. TRASYLOL [Suspect]
     Indication: CORONARY ARTERY BYPASS
     Dosage: TEST DOSE (1ML) LOADING DOSE (200CC)
     Route: 042
     Dates: start: 20050121, end: 20050121
  2. GLYBURIDE [Concomitant]
     Dosage: 5MG TABLETS IN THE AM AND ONE TABLET IN THE PM
     Route: 048
  3. PLAVIX [Concomitant]
     Dosage: 75MG
     Route: 048
  4. LASIX [Concomitant]
     Dosage: 20 MG, QD
     Route: 048
  5. METOPROLOL SUCCINATE [Concomitant]
     Dosage: 50MG 1-2 DAILY
     Route: 048
  6. NORVASC [Concomitant]
     Dosage: 10 MG, QD
     Route: 048
  7. MILRINONE [Concomitant]
     Dosage: 4.75
     Route: 042
     Dates: start: 20050121, end: 20050121
  8. MANNITOL [Concomitant]
     Dosage: 25 GRAMS
     Dates: start: 20050121, end: 20050121
  9. CLONIDINE [Concomitant]
     Dosage: 0.3 MG, QD
     Route: 048
  10. HEPARIN [Concomitant]
     Dosage: 34000 UNITS, 17000 UNITS, 10000 UNITS
     Dates: start: 20050121, end: 20050121
  11. HEPARIN [Concomitant]
     Dosage: 5000 UNITS VIA CARDIOPULMONARY BYPASS PUMP
     Dates: start: 20050121, end: 20050121
  12. CONTRAST MEDIA [Concomitant]
     Indication: COMPUTERISED TOMOGRAM
     Dosage: UNK
     Dates: start: 20050124
  13. TRASYLOL [Suspect]
     Indication: AORTIC VALVE REPLACEMENT
  14. ACETYLSALICYLIC ACID SRT [Concomitant]
     Dosage: EVERYDAY
     Route: 048
  15. LIPITOR [Concomitant]
     Dosage: 20 MG, HS
     Route: 048
  16. ACCURETIC [Concomitant]
     Dosage: 20 MG, QD
     Route: 048
  17. INSULIN [INSULIN] [Concomitant]
     Dosage: 4 UNITS, 3UNTIS, 10 UNITS
     Route: 042
     Dates: start: 20050121, end: 20050121
  18. PROTAMINE SULFATE [Concomitant]
     Dosage: 400MG
     Route: 042
     Dates: start: 20050121, end: 20050121
  19. PLATELETS [Concomitant]
     Dosage: 325CC
     Route: 042
     Dates: start: 20050121, end: 20050121
  20. FENTANYL [Concomitant]
     Dosage: 16
     Route: 042
     Dates: start: 20050121, end: 20050121

REACTIONS (9)
  - CARDIAC FAILURE CONGESTIVE [None]
  - ANXIETY [None]
  - PAIN [None]
  - ANHEDONIA [None]
  - RENAL FAILURE [None]
  - INJURY [None]
  - FEAR [None]
  - UNEVALUABLE EVENT [None]
  - DEPRESSION [None]
